FAERS Safety Report 6588871-4 (Version None)
Quarter: 2010Q1

REPORT INFORMATION
  Report Type: 
  Country: None (occurrence: None)
  Receive Date: 20100218
  Receipt Date: 20100211
  Transmission Date: 20100710
  Serious: Yes (Life-Threatening, Other)
  Sender: FDA-Public Use
  Company Number: B0609349A

PATIENT
  Sex: Male
  Weight: 50 kg

DRUGS (29)
  1. ZANAMIVIR [Suspect]
     Indication: H1N1 INFLUENZA
     Dosage: 600MG SINGLE DOSE
     Route: 042
     Dates: start: 20091128, end: 20091128
  2. CEFOTAXIME [Suspect]
     Indication: INFECTION
     Dosage: 3G THREE TIMES PER DAY
     Route: 042
     Dates: start: 20091121, end: 20091128
  3. CEFTRIAXONE SODIUM [Suspect]
     Indication: INFECTION
     Dosage: 2G PER DAY
     Route: 042
     Dates: start: 20091124, end: 20091128
  4. MILRINONE [Suspect]
     Route: 042
     Dates: start: 20091125, end: 20091128
  5. KETAMINE HCL [Suspect]
     Indication: SEDATION
     Dosage: 3MGKH PER DAY
     Route: 042
     Dates: start: 20091121, end: 20091128
  6. MIDAZOLAM HCL [Suspect]
     Indication: SEDATION
     Dosage: .2MGKH PER DAY
     Route: 042
     Dates: start: 20091121, end: 20091128
  7. SUFENTA [Suspect]
     Indication: SEDATION
     Dosage: .3MGKH PER DAY
     Route: 042
     Dates: start: 20091121, end: 20091128
  8. TAMIFLU [Suspect]
     Indication: H1N1 INFLUENZA
     Route: 048
     Dates: start: 20091121, end: 20091127
  9. NIMBEX [Concomitant]
     Dosage: .3MGKH UNKNOWN
     Route: 042
     Dates: start: 20091121, end: 20091128
  10. LASILIX [Concomitant]
     Dosage: 100MG PER DAY
     Route: 042
     Dates: start: 20091124
  11. DOBUTAMINE [Concomitant]
     Route: 042
     Dates: start: 20091126, end: 20091127
  12. LOXEN [Concomitant]
     Route: 042
     Dates: start: 20091127
  13. NORADRENALINE [Concomitant]
     Route: 042
     Dates: start: 20091122, end: 20091123
  14. NEXIUM [Concomitant]
     Dosage: 20MG PER DAY
     Route: 042
     Dates: start: 20091121
  15. FORLAX [Concomitant]
     Dosage: 10G TWICE PER DAY
     Route: 048
     Dates: start: 20091123
  16. CIPROFLOXACIN HCL [Concomitant]
     Indication: INFECTION
     Dosage: 600MG TWICE PER DAY
     Route: 042
     Dates: start: 20091121, end: 20091124
  17. BIOCIDAN [Concomitant]
     Route: 061
  18. VITAMIN A [Concomitant]
     Route: 061
  19. VENTILATION [Concomitant]
     Indication: RESPIRATORY DISTRESS
     Dates: start: 20091118
  20. INTUBATION [Concomitant]
     Indication: RESPIRATORY DISTRESS
     Dates: start: 20091118
  21. PIPERACILLIN [Concomitant]
     Indication: INFECTION
     Dates: start: 20091129, end: 20091202
  22. VANCOMYCIN [Concomitant]
     Indication: INFECTION
     Route: 065
     Dates: start: 20091129, end: 20091202
  23. AMIKIN [Concomitant]
     Indication: INFECTION
     Route: 065
     Dates: start: 20091129, end: 20091202
  24. STERILE WATER [Concomitant]
     Route: 055
     Dates: start: 20091207, end: 20091209
  25. CLONIDINE HCL [Concomitant]
     Route: 065
     Dates: start: 20091130, end: 20091205
  26. NOZINAN [Concomitant]
     Route: 065
  27. OXYGEN [Concomitant]
     Indication: ACUTE RESPIRATORY DISTRESS SYNDROME
     Route: 065
     Dates: start: 20091118, end: 20091209
  28. ADRENALINE [Concomitant]
     Route: 055
     Dates: start: 20091204
  29. CORTICOID [Concomitant]
     Route: 065
     Dates: start: 20091201, end: 20091201

REACTIONS (8)
  - ALANINE AMINOTRANSFERASE INCREASED [None]
  - ASPARTATE AMINOTRANSFERASE INCREASED [None]
  - BLOOD CREATININE INCREASED [None]
  - CHOLESTASIS [None]
  - DRUG TOXICITY [None]
  - GAMMA-GLUTAMYLTRANSFERASE INCREASED [None]
  - HEPATOCELLULAR INJURY [None]
  - RENAL FAILURE [None]
